FAERS Safety Report 9259546 (Version 11)
Quarter: 2014Q2

REPORT INFORMATION
  Report Type: Spontaneous
  Country: US (occurrence: US)
  Receive Date: 20130429
  Receipt Date: 20140527
  Transmission Date: 20141212
  Serious: Yes (Hospitalization, Disabling, Other)
  Sender: FDA-Public Use
  Company Number: US-ASTRAZENECA-2013SE27078

PATIENT
  Age: 49 Year
  Sex: Male
  Weight: 99.8 kg

DRUGS (59)
  1. NEXIUM [Suspect]
     Indication: GASTROOESOPHAGEAL REFLUX DISEASE
     Dosage: 2 PILLS A DAY
     Route: 048
  2. NEXIUM [Suspect]
     Indication: GASTROOESOPHAGEAL REFLUX DISEASE
     Dosage: DAILY
     Route: 048
     Dates: start: 2001, end: 2011
  3. NEXIUM [Suspect]
     Indication: GASTROOESOPHAGEAL REFLUX DISEASE
     Route: 048
     Dates: start: 20031201
  4. NEXIUM [Suspect]
     Indication: GASTROOESOPHAGEAL REFLUX DISEASE
     Route: 048
     Dates: start: 2005, end: 2011
  5. NEXIUM [Suspect]
     Indication: GASTROOESOPHAGEAL REFLUX DISEASE
     Route: 048
     Dates: start: 20051101
  6. NEXIUM [Suspect]
     Indication: GASTROOESOPHAGEAL REFLUX DISEASE
     Route: 048
     Dates: start: 20101117
  7. NEXIUM [Suspect]
     Indication: GASTROOESOPHAGEAL REFLUX DISEASE
     Route: 048
     Dates: start: 20060714
  8. PRILOSEC [Suspect]
     Indication: GASTROOESOPHAGEAL REFLUX DISEASE
     Dosage: 2 PILL DAILY
     Route: 048
     Dates: start: 1997, end: 2001
  9. PRILOSEC [Suspect]
     Indication: GASTROOESOPHAGEAL REFLUX DISEASE
     Dosage: 2 PILL DAILY
     Route: 048
     Dates: start: 2001, end: 2009
  10. PRILOSEC [Suspect]
     Indication: GASTROOESOPHAGEAL REFLUX DISEASE
     Route: 048
     Dates: start: 20011206
  11. PRILOSEC [Suspect]
     Indication: GASTROOESOPHAGEAL REFLUX DISEASE
     Route: 048
     Dates: start: 20010609
  12. PRILOSEC [Suspect]
     Indication: GASTROOESOPHAGEAL REFLUX DISEASE
     Route: 048
     Dates: start: 20090816
  13. PROTONIX [Suspect]
     Indication: GASTROOESOPHAGEAL REFLUX DISEASE
     Route: 065
  14. PREVACID [Suspect]
     Indication: GASTROOESOPHAGEAL REFLUX DISEASE
     Route: 065
     Dates: start: 2006
  15. ACIPHEX [Suspect]
     Indication: GASTROOESOPHAGEAL REFLUX DISEASE
     Route: 065
     Dates: start: 2007, end: 2008
  16. ACIPHEX [Suspect]
     Indication: GASTROOESOPHAGEAL REFLUX DISEASE
     Route: 065
     Dates: start: 2007, end: 2009
  17. WARFARIN [Concomitant]
     Indication: THROMBOSIS
     Dates: start: 20061009
  18. WARFARIN [Concomitant]
     Indication: THROMBOSIS
     Dates: start: 20061009
  19. BLOOD PRESSURE MEDICATION [Concomitant]
  20. BONIVA [Concomitant]
     Indication: OSTEOPOROSIS
     Dates: start: 2006
  21. CALCIUM WITH VITAMIN D [Concomitant]
  22. CHOLESTEROL MEDICATION [Concomitant]
  23. PAIN MEDICATION [Concomitant]
  24. ATENOL [Concomitant]
     Indication: HYPERTENSION
  25. LISINOPRIL [Concomitant]
     Indication: HYPERTENSION
  26. CRESTOR [Concomitant]
     Indication: BLOOD CHOLESTEROL ABNORMAL
  27. PRAVASTATIN [Concomitant]
     Indication: BLOOD CHOLESTEROL ABNORMAL
  28. PRAVASTATIN [Concomitant]
     Indication: LIPIDS INCREASED
  29. SIMVASTATIN [Concomitant]
     Indication: BLOOD CHOLESTEROL ABNORMAL
  30. CYMBALTA [Concomitant]
     Indication: DEPRESSION
     Dates: start: 1998
  31. EFFEXOR [Concomitant]
     Indication: DEPRESSION
     Dates: start: 1998
  32. PAXIL [Concomitant]
     Indication: DEPRESSION
     Dates: start: 1998
  33. ZOLOFT [Concomitant]
     Indication: DEPRESSION
     Dates: start: 1998
  34. XANAX [Concomitant]
     Indication: ANXIETY
  35. XANAX [Concomitant]
     Indication: PANIC ATTACK
  36. MULTI-VITAMIN [Concomitant]
  37. AMBIEN [Concomitant]
  38. PURINETHOL [Concomitant]
     Dates: start: 20010906
  39. PHENYTOIN [Concomitant]
     Dates: start: 20010911
  40. ACETAMINOPHEN [Concomitant]
  41. IMITREX [Concomitant]
     Dates: start: 20011010
  42. TUMS [Concomitant]
  43. PEPTO-BISMOL [Concomitant]
  44. MYLANTA [Concomitant]
  45. ASACOL [Concomitant]
  46. GABAPENTIN [Concomitant]
     Indication: NEUROPATHY PERIPHERAL
  47. MUTOCLOPRAMIDE [Concomitant]
     Indication: DIVERTICULITIS
  48. OXCARBAZEPINE [Concomitant]
     Indication: CONVULSION
  49. PHENOBARBITAL [Concomitant]
     Indication: CONVULSION
  50. RELPAX [Concomitant]
  51. ZYRTEC [Concomitant]
     Indication: MULTIPLE ALLERGIES
  52. METHADONE [Concomitant]
     Indication: INTERVERTEBRAL DISC PROTRUSION
  53. LEXAPRO [Concomitant]
  54. PREDNISONE [Concomitant]
  55. PREDNISONE [Concomitant]
  56. ROXICODONE [Concomitant]
     Dates: start: 20090817
  57. TYLENOL [Concomitant]
     Indication: MIGRAINE
     Dates: start: 20011209
  58. ONDANSETRON [Concomitant]
     Dates: start: 20091208
  59. MORPHINE [Concomitant]
     Dates: start: 20091208

REACTIONS (38)
  - Spinal compression fracture [Unknown]
  - Spinal fracture [Unknown]
  - Infection [Unknown]
  - Laceration [Unknown]
  - Intervertebral disc degeneration [Unknown]
  - Spinal osteoarthritis [Unknown]
  - Thrombosis [Recovered/Resolved]
  - Fall [Unknown]
  - Clostridium difficile infection [Unknown]
  - Haemorrhoids thrombosed [Unknown]
  - Inflammatory bowel disease [Unknown]
  - Irritable bowel syndrome [Unknown]
  - Adverse drug reaction [Unknown]
  - Food poisoning [Unknown]
  - Back injury [Unknown]
  - Appendicitis perforated [Unknown]
  - Pneumonia [Unknown]
  - Influenza [Unknown]
  - Hip fracture [Unknown]
  - Ankle fracture [Unknown]
  - Depression [Unknown]
  - Osteoporosis [Unknown]
  - Bone disorder [Unknown]
  - Osteopenia [Unknown]
  - Arthritis [Unknown]
  - Calcium deficiency [Unknown]
  - Back pain [Unknown]
  - Pain in extremity [Unknown]
  - Hand fracture [Unknown]
  - Intervertebral disc protrusion [Unknown]
  - Spinal column stenosis [Unknown]
  - Peripheral arterial occlusive disease [Unknown]
  - Anxiety [Unknown]
  - Mental disorder [Unknown]
  - Osteoarthritis [Unknown]
  - Lumbar radiculopathy [Unknown]
  - Lumbar spinal stenosis [Unknown]
  - Radiculitis [Unknown]
